FAERS Safety Report 12963467 (Version 1)
Quarter: 2016Q4

REPORT INFORMATION
  Report Type: Spontaneous
  Country: GB (occurrence: GB)
  Receive Date: 20161122
  Receipt Date: 20161122
  Transmission Date: 20170207
  Serious: Yes (Other)
  Sender: FDA-Public Use
  Company Number: GB-AUROBINDO-AUR-APL-2016-14000

PATIENT
  Age: 27 Year
  Sex: Male
  Weight: 90 kg

DRUGS (4)
  1. PARACETAMOL [Concomitant]
     Active Substance: ACETAMINOPHEN
     Indication: PRODUCT USED FOR UNKNOWN INDICATION
     Route: 065
  2. TRAMADOL HARD CAPSULE [Suspect]
     Active Substance: TRAMADOL
     Indication: BURNS SECOND DEGREE
     Dosage: 100 MG, FOUR TIMES/DAY
     Route: 048
     Dates: start: 20161025, end: 20161027
  3. IBUPROFEN. [Concomitant]
     Active Substance: IBUPROFEN
     Indication: PRODUCT USED FOR UNKNOWN INDICATION
     Route: 065
  4. TRAMADOL. [Suspect]
     Active Substance: TRAMADOL
     Indication: BURNS SECOND DEGREE
     Dosage: 200 MG, TWO TIMES A DAY
     Route: 048
     Dates: start: 20161028

REACTIONS (4)
  - Dysuria [Not Recovered/Not Resolved]
  - Syncope [Unknown]
  - Hyperhidrosis [Unknown]
  - Hiccups [Unknown]

NARRATIVE: CASE EVENT DATE: 20161028
